FAERS Safety Report 5470882-3 (Version None)
Quarter: 2007Q3

REPORT INFORMATION
  Report Type: 
  Country: None (occurrence: None)
  Receive Date: 20070928
  Receipt Date: 20070905
  Transmission Date: 20080115
  Serious: Yes (Death, Hospitalization, Other)
  Sender: FDA-Public Use
  Company Number: US-BAYER-200712655BWH

PATIENT
  Age: 83 Year
  Sex: Male

DRUGS (5)
  1. AVELOX [Suspect]
     Indication: PNEUMONIA
     Route: 048
     Dates: start: 20070802, end: 20070806
  2. ROCEPHIN [Suspect]
     Route: 030
     Dates: start: 20070802
  3. TYLENOL (CAPLET) [Suspect]
     Dates: start: 20070802
  4. LISINOPRIL [Concomitant]
  5. ALLOPURINOL [Concomitant]

REACTIONS (10)
  - ABDOMINAL PAIN [None]
  - ANAEMIA HAEMOLYTIC AUTOIMMUNE [None]
  - COMA [None]
  - DYSPNOEA [None]
  - HYPOTENSION [None]
  - JAUNDICE [None]
  - LABORATORY TEST ABNORMAL [None]
  - OXYGEN SATURATION DECREASED [None]
  - SINUS TACHYCARDIA [None]
  - VOMITING [None]
